FAERS Safety Report 21336801 (Version 1)
Quarter: 2022Q3

REPORT INFORMATION
  Report Type: Report from Study
  Country: US (occurrence: US)
  Receive Date: 20220915
  Receipt Date: 20220915
  Transmission Date: 20221027
  Serious: Yes (Hospitalization)
  Sender: FDA-Public Use
  Company Number: US-CHIASMA-2021CHI00120

PATIENT
  Sex: Female
  Weight: 65.76 kg

DRUGS (6)
  1. OCTREOTIDE [Suspect]
     Active Substance: OCTREOTIDE
     Indication: Acromegaly
     Dosage: 40 MG PER DAY
     Route: 048
     Dates: start: 20210429, end: 2021
  2. OCTREOTIDE [Suspect]
     Active Substance: OCTREOTIDE
     Dosage: 40 MG, 2X/DAY, IN THE MORNING AND AFTERNOON
     Route: 048
     Dates: start: 2021, end: 20211108
  3. LOSARTAN [Concomitant]
     Active Substance: LOSARTAN
     Indication: Product used for unknown indication
     Route: 065
  4. AMLODIPINE [Concomitant]
     Active Substance: AMLODIPINE BESYLATE
     Indication: Product used for unknown indication
     Route: 065
  5. FENOFIBRATE [Concomitant]
     Active Substance: FENOFIBRATE
     Indication: Product used for unknown indication
     Route: 065
  6. LEVOTHYROXINE [Concomitant]
     Active Substance: LEVOTHYROXINE
     Indication: Product used for unknown indication
     Route: 065

REACTIONS (5)
  - Pituitary tumour benign [Recovered/Resolved]
  - Tumour rupture [Unknown]
  - Tumour invasion [Unknown]
  - Poor quality product administered [Unknown]
  - Therapy interrupted [Unknown]

NARRATIVE: CASE EVENT DATE: 20210101
